FAERS Safety Report 25839363 (Version 1)
Quarter: 2025Q3

REPORT INFORMATION
  Report Type: Report from Study
  Country: PK (occurrence: PK)
  Receive Date: 20250924
  Receipt Date: 20250924
  Transmission Date: 20251020
  Serious: Yes (Other)
  Sender: ROCHE
  Company Number: PK-ROCHE-10000390328

PATIENT
  Age: 65 Year
  Sex: Female

DRUGS (1)
  1. TECENTRIQ [Suspect]
     Active Substance: ATEZOLIZUMAB
     Indication: Hepatocellular carcinoma
     Route: 042
     Dates: start: 20250620

REACTIONS (4)
  - Metastases to the respiratory system [Unknown]
  - Internal haemorrhage [Unknown]
  - Pyrexia [Unknown]
  - Pain [Unknown]

NARRATIVE: CASE EVENT DATE: 20250912
